FAERS Safety Report 7366751-4 (Version None)
Quarter: 2011Q1

REPORT INFORMATION
  Report Type: 
  Country: None (occurrence: None)
  Receive Date: 20110322
  Receipt Date: 20110318
  Transmission Date: 20110831
  Serious: Yes (Death, Hospitalization)
  Sender: FDA-Public Use
  Company Number: DE-ROCHE-758496

PATIENT
  Age: 74 Year
  Sex: Female
  Weight: 51 kg

DRUGS (4)
  1. DIMENHYDRINATE [Concomitant]
     Dates: start: 20101220, end: 20110211
  2. TOPOTECAN [Suspect]
     Dosage: LAST DOSE PRIOR TO SAE WAS ON 21 JAN 2011. FREQUENCY: DAY 1-5.
     Route: 042
     Dates: start: 20101208, end: 20110207
  3. METOCLOPRAMIDE [Concomitant]
     Dates: start: 20101112, end: 20110211
  4. BEVACIZUMAB [Suspect]
     Dosage: FREQUENCY: EVERY 3 WEEKS.LAST DOSE PRIOR TO SAE WAS ON 17 JAN 2011.
     Route: 042
     Dates: start: 20101208, end: 20110207

REACTIONS (3)
  - PNEUMONIA ASPIRATION [None]
  - NAUSEA [None]
  - VOMITING [None]
